APPROVED DRUG PRODUCT: THEOPHYLLINE AND DEXTROSE 5% IN PLASTIC CONTAINER
Active Ingredient: THEOPHYLLINE
Strength: 4MG/ML
Dosage Form/Route: INJECTABLE;INJECTION
Application: N018649 | Product #007
Applicant: BAXTER HEALTHCARE CORP
Approved: Jul 26, 1982 | RLD: No | RS: No | Type: DISCN